FAERS Safety Report 4554487-4 (Version None)
Quarter: 2005Q1

REPORT INFORMATION
  Report Type: 
  Country: None (occurrence: None)
  Receive Date: 20041228
  Receipt Date: 20040305
  Transmission Date: 20050727
  Serious: Yes (Hospitalization)
  Sender: FDA-Public Use
  Company Number: 138385USA

PATIENT
  Age: 75 Year
  Sex: Female

DRUGS (3)
  1. NAPROXEN [Suspect]
     Indication: PAIN
     Dosage: 500 MILLIGRAM ORAL
     Route: 048
     Dates: start: 20030208, end: 20030305
  2. INDERAL [Concomitant]
  3. CLARINEX [Concomitant]

REACTIONS (4)
  - ASTHENIA [None]
  - ERYTHEMA [None]
  - NAUSEA [None]
  - VOMITING [None]
